FAERS Safety Report 6221152-7 (Version None)
Quarter: 2009Q2

REPORT INFORMATION
  Report Type: 
  Country: None (occurrence: None)
  Receive Date: 20090608
  Receipt Date: 20090526
  Transmission Date: 20091009
  Serious: Yes (Life-Threatening)
  Sender: FDA-Public Use
  Company Number: 2009-197743-NL

PATIENT
  Sex: 0

DRUGS (2)
  1. VECURONIUM BROMIDE [Suspect]
  2. ROCURONIUM BROMIDE [Suspect]

REACTIONS (1)
  - ENDOTRACHEAL INTUBATION COMPLICATION [None]
